FAERS Safety Report 10703938 (Version 1)
Quarter: 2015Q1

REPORT INFORMATION
  Report Type: Spontaneous
  Country: IT (occurrence: IT)
  Receive Date: 20150112
  Receipt Date: 20150112
  Transmission Date: 20150721
  Serious: Yes (Hospitalization)
  Sender: FDA-Public Use
  Company Number: IT-TEVA-533520ISR

PATIENT
  Age: 74 Year
  Sex: Female

DRUGS (1)
  1. CARBOLITHIUM 300 MG [Suspect]
     Active Substance: LITHIUM CARBONATE
     Indication: BIPOLAR DISORDER
     Dates: start: 20130101, end: 20140620

REACTIONS (2)
  - Drop attacks [Unknown]
  - Hypokinesia [Unknown]

NARRATIVE: CASE EVENT DATE: 20140620
